FAERS Safety Report 24459606 (Version 1)
Quarter: 2024Q4

REPORT INFORMATION
  Report Type: Report from Study
  Country: US (occurrence: US)
  Receive Date: 20241018
  Receipt Date: 20241018
  Transmission Date: 20250114
  Serious: No
  Sender: ROCHE
  Company Number: US-ROCHE-3542269

PATIENT
  Age: 72 Year
  Sex: Female

DRUGS (3)
  1. RITUXAN [Suspect]
     Active Substance: RITUXIMAB
     Indication: Rheumatoid arthritis
     Dosage: DATE OF SERVICE 26/MAR/2024,  15/NOV/2021, 23/APR/2024?DAY 1 AND DAY 15
     Route: 041
     Dates: start: 20230623
  2. RITUXAN [Suspect]
     Active Substance: RITUXIMAB
     Route: 042
     Dates: start: 20230626
  3. RITUXAN [Suspect]
     Active Substance: RITUXIMAB
     Route: 065

REACTIONS (1)
  - Vein collapse [Recovered/Resolved]

NARRATIVE: CASE EVENT DATE: 20240326
